FAERS Safety Report 5855108-0 (Version None)
Quarter: 2008Q3

REPORT INFORMATION
  Report Type: 
  Country: None (occurrence: None)
  Receive Date: 20080822
  Receipt Date: 20080630
  Transmission Date: 20090109
  Serious: No
  Sender: FDA-Public Use
  Company Number: US-ABBOTT-08P-163-0460268-00

PATIENT
  Sex: Female
  Weight: 78.088 kg

DRUGS (4)
  1. SYNTHROID [Suspect]
     Indication: HYPOTHYROIDISM
     Route: 048
  2. SYNTHROID [Suspect]
     Indication: GOITRE
     Route: 048
     Dates: start: 19970101
  3. SITAGLIPTIN PHOSPHATE [Concomitant]
     Indication: DIABETES MELLITUS
     Route: 048
  4. INHALERS [Concomitant]
     Indication: ASTHMA
     Route: 055

REACTIONS (5)
  - FATIGUE [None]
  - IRRITABILITY [None]
  - THYROXINE ABNORMAL [None]
  - TYPE 2 DIABETES MELLITUS [None]
  - WEIGHT INCREASED [None]
